FAERS Safety Report 5452910-4 (Version None)
Quarter: 2007Q3

REPORT INFORMATION
  Report Type: 
  Country: None (occurrence: None)
  Receive Date: 20070914
  Receipt Date: 20070911
  Transmission Date: 20080115
  Serious: Yes (Hospitalization)
  Sender: FDA-Public Use
  Company Number: B0486144A

PATIENT
  Age: 60 Year
  Sex: Female

DRUGS (9)
  1. VALTREX [Suspect]
     Indication: HERPES ZOSTER
     Dosage: 500MG PER DAY
     Route: 048
     Dates: start: 20070831, end: 20070902
  2. UNKNOWN MEDICATION [Concomitant]
     Route: 048
  3. UNKNOWN MEDICATION [Concomitant]
     Route: 048
  4. SAWATENE [Concomitant]
     Route: 048
  5. UNKNOWN MEDICATION [Concomitant]
     Route: 048
  6. NORVASC [Concomitant]
     Route: 048
  7. UNKNOWN MEDICATION [Concomitant]
     Route: 048
  8. CALTAN [Concomitant]
     Route: 048
  9. UNKNOWN MEDICATION [Concomitant]
     Route: 048

REACTIONS (3)
  - DYSARTHRIA [None]
  - PALPITATIONS [None]
  - TREMOR [None]
